FAERS Safety Report 26209703 (Version 1)
Quarter: 2025Q4

REPORT INFORMATION
  Report Type: Spontaneous
  Country: CN (occurrence: CN)
  Receive Date: 20251229
  Receipt Date: 20251229
  Transmission Date: 20260117
  Serious: Yes (Other)
  Sender: PFIZER
  Company Number: CN-PFIZER INC-PV202500150804

PATIENT
  Age: 67 Year
  Sex: Male
  Weight: 45 kg

DRUGS (6)
  1. TIGECYCLINE [Suspect]
     Active Substance: TIGECYCLINE
     Indication: Pneumonia
     Dosage: 100 MG (FIRST DOSE)
     Route: 041
     Dates: start: 20251201, end: 20251201
  2. TIGECYCLINE [Suspect]
     Active Substance: TIGECYCLINE
     Dosage: 50 MG, 2X/DAY
     Route: 041
     Dates: start: 20251201, end: 20251210
  3. MICAFUNGIN SODIUM [Suspect]
     Active Substance: MICAFUNGIN SODIUM
     Indication: Pneumonia
     Dosage: 100 MG, 1X/DAY
     Route: 041
     Dates: start: 20251208, end: 20251210
  4. MICAFUNGIN SODIUM [Suspect]
     Active Substance: MICAFUNGIN SODIUM
     Indication: Fungal infection
  5. MEROPENEM [Suspect]
     Active Substance: MEROPENEM
     Indication: Pneumonia
     Dosage: 1 G (FIRST DOSE)
     Route: 041
     Dates: start: 20251201, end: 20251201
  6. MEROPENEM [Suspect]
     Active Substance: MEROPENEM
     Dosage: 0.5 G, 4X/DAY
     Route: 041
     Dates: start: 20251201, end: 20251210

REACTIONS (4)
  - Rash macular [Recovering/Resolving]
  - Erythema [Recovering/Resolving]
  - Dermatitis bullous [Recovering/Resolving]
  - Skin exfoliation [Recovering/Resolving]

NARRATIVE: CASE EVENT DATE: 20251210
